FAERS Safety Report 20278425 (Version 1)
Quarter: 2022Q1

REPORT INFORMATION
  Report Type: Spontaneous
  Country: US (occurrence: US)
  Receive Date: 20220103
  Receipt Date: 20220103
  Transmission Date: 20220424
  Serious: No
  Sender: FDA-Public Use
  Company Number: US-TEVA-2021-US-1993976

PATIENT
  Age: 39 Year
  Sex: Male

DRUGS (1)
  1. QVAR REDIHALER [Suspect]
     Active Substance: BECLOMETHASONE DIPROPIONATE
     Dosage: DOSAGE FORM: INHALATION - AEROSOL
     Route: 055

REACTIONS (6)
  - Hypersensitivity [Unknown]
  - Asthma [Unknown]
  - Nasal congestion [Unknown]
  - Device malfunction [Unknown]
  - Incorrect route of product administration [Unknown]
  - Incorrect dose administered by device [Unknown]

NARRATIVE: CASE EVENT DATE: 20211201
